FAERS Safety Report 5852474-7 (Version None)
Quarter: 2008Q3

REPORT INFORMATION
  Report Type: 
  Country: None (occurrence: None)
  Receive Date: 20080819
  Receipt Date: 20080808
  Transmission Date: 20090109
  Serious: Yes (Hospitalization)
  Sender: FDA-Public Use
  Company Number: 2008BI012414

PATIENT
  Age: 43 Year
  Sex: Female

DRUGS (2)
  1. AVONEX [Suspect]
     Indication: MULTIPLE SCLEROSIS
     Dosage: IM; 30 UG; QW; IM
     Route: 030
     Dates: end: 20080725
  2. AVONEX [Suspect]
     Indication: MULTIPLE SCLEROSIS
     Dosage: IM; 30 UG; QW; IM
     Route: 030
     Dates: start: 20000101

REACTIONS (4)
  - FATIGUE [None]
  - MUSCULAR WEAKNESS [None]
  - URINARY TRACT INFECTION [None]
  - UTERINE LEIOMYOMA [None]
